FAERS Safety Report 9176941 (Version 2)
Quarter: 2014Q1

REPORT INFORMATION
  Report Type: Spontaneous
  Country: US (occurrence: US)
  Receive Date: 20120531
  Receipt Date: 20140221
  Transmission Date: 20141002
  Serious: Yes (Other)
  Sender: FDA-Public Use
  Company Number: US201110004493

PATIENT
  Age: 56 Year
  Sex: Male
  Weight: 122.9 kg

DRUGS (15)
  1. BYETTA PEN DISPOSABLE [Suspect]
     Dates: start: 200708, end: 200904
  2. ACIPHEX [Concomitant]
  3. ALDACTONE [Concomitant]
  4. ASPIRIN [Concomitant]
  5. CLONAZEPAM [Concomitant]
     Dosage: AT BEDTIME.
  6. DIABETA [Concomitant]
  7. FLOMAX [Concomitant]
     Dosage: AT BEDTIME
  8. LORTAB [Concomitant]
     Dosage: 1DF: 5 UNITS NOS
  9. LYRICA [Concomitant]
  10. MECLIZINE [Concomitant]
  11. METFORMIN [Concomitant]
  12. PLAVIX [Concomitant]
  13. PROVIGIL [Concomitant]
  14. XANAX [Concomitant]
  15. ZOCOR [Concomitant]
     Dosage: AT BEDTIME

REACTIONS (1)
  - Pancreatitis [Unknown]
